FAERS Safety Report 9887698 (Version 1)
Quarter: 2014Q1

REPORT INFORMATION
  Report Type: Spontaneous
  Country: US (occurrence: None)
  Receive Date: 20140206
  Receipt Date: 20140206
  Transmission Date: 20141002
  Serious: Yes (Hospitalization)
  Sender: FDA-Public Use
  Company Number: US-ZYDUS-002485

PATIENT
  Age: 78 Year
  Sex: Male

DRUGS (1)
  1. WARFARIN [Suspect]

REACTIONS (5)
  - Shock haemorrhagic [None]
  - Syncope [None]
  - International normalised ratio increased [None]
  - Haemoglobin decreased [None]
  - Spontaneous haematoma [None]
